FAERS Safety Report 17495766 (Version 1)
Quarter: 2020Q1

REPORT INFORMATION
  Report Type: Spontaneous
  Country: US (occurrence: US)
  Receive Date: 20200304
  Receipt Date: 20200304
  Transmission Date: 20200409
  Serious: No
  Sender: FDA-Public Use
  Company Number: US-PFIZER INC-2020095385

PATIENT
  Sex: Female

DRUGS (3)
  1. ADVIL [Suspect]
     Active Substance: IBUPROFEN
     Indication: NASOPHARYNGITIS
  2. ADVIL [Suspect]
     Active Substance: IBUPROFEN
     Indication: COUGH
     Dosage: 1 DF, UNK
  3. ADVIL [Suspect]
     Active Substance: IBUPROFEN
     Indication: PYREXIA
     Dosage: 2 DF, 2X/DAY

REACTIONS (1)
  - Drug ineffective [Unknown]
